FAERS Safety Report 4773480-X (Version None)
Quarter: 2005Q3

REPORT INFORMATION
  Report Type: 
  Country: None (occurrence: None)
  Receive Date: 20050920
  Receipt Date: 20050909
  Transmission Date: 20060218
  Serious: Yes (Other)
  Sender: FDA-Public Use
  Company Number: PHEH2005US10059

PATIENT
  Age: 76 Year
  Sex: Female

DRUGS (5)
  1. ZOMETA [Suspect]
     Indication: MULTIPLE MYELOMA
     Dosage: 4MG Q4WK
     Route: 042
     Dates: start: 20050223, end: 20050811
  2. ACIPHEX [Concomitant]
     Dosage: 20MG QD
  3. PAXIL [Concomitant]
     Dosage: 40MG QD
  4. MORPHINE SULFATE [Concomitant]
     Dosage: 60MG BID
  5. COUMADIN [Concomitant]
     Dosage: 3MG QD EXCEPT TUES/THURS

REACTIONS (3)
  - ASEPTIC NECROSIS BONE [None]
  - GINGIVAL DISORDER [None]
  - PAIN IN JAW [None]
